FAERS Safety Report 6236111-8 (Version None)
Quarter: 2009Q2

REPORT INFORMATION
  Report Type: 
  Country: None (occurrence: None)
  Receive Date: 20090619
  Receipt Date: 20090610
  Transmission Date: 20091009
  Serious: Yes (Other)
  Sender: FDA-Public Use
  Company Number: JP-PFIZER INC-2009213685

PATIENT
  Age: 78 Year

DRUGS (4)
  1. NORVASC [Suspect]
     Indication: HYPERTENSION
     Dosage: UNK
     Dates: end: 20090413
  2. FLUITRAN [Concomitant]
     Indication: HYPERTENSION
     Dosage: UNK
     Route: 048
  3. MEVALOTIN [Concomitant]
     Dosage: UNK
     Route: 048
  4. MAINTATE [Concomitant]
     Indication: HYPERTENSION
     Dosage: 2.5 MG, 1X/DAY
     Route: 048

REACTIONS (1)
  - HAEMOGLOBIN DECREASED [None]
